FAERS Safety Report 26107765 (Version 1)
Quarter: 2025Q4

REPORT INFORMATION
  Report Type: Spontaneous
  Country: US (occurrence: None)
  Receive Date: 20251130
  Receipt Date: 20251130
  Transmission Date: 20260117
  Serious: No
  Sender: FDA-CTU
  Company Number: None

PATIENT
  Age: 46 Year
  Sex: Male
  Weight: 82.35 kg

DRUGS (1)
  1. TIRZEPATIDE [Suspect]
     Active Substance: TIRZEPATIDE
     Indication: Weight
     Dosage: OTHER QUANTITY : 1 VIAL?OTHER FREQUENCY : WEEKLY?
     Route: 058
     Dates: start: 20250914, end: 20251123

REACTIONS (3)
  - Rash [None]
  - Pain [None]
  - Product dispensing issue [None]

NARRATIVE: CASE EVENT DATE: 20251102
